FAERS Safety Report 9408319 (Version 2)
Quarter: 2013Q4

REPORT INFORMATION
  Report Type: Spontaneous
  Country: FR (occurrence: None)
  Receive Date: 20130716
  Receipt Date: 20131029
  Transmission Date: 20140711
  Serious: Yes (Hospitalization)
  Sender: FDA-Public Use
  Company Number: IMP_06739_2013

PATIENT
  Age: 28 Year
  Sex: Female

DRUGS (5)
  1. BACLOFEN [Suspect]
     Indication: ALCOHOLISM
     Route: 048
  2. PRAXITEN PLIVA (OXAZEPAM) (OXAZEPAM) [Suspect]
     Indication: PRODUCT USED FOR UNKNOWN INDICATION
     Dosage: 100 MG 1X, DF)
  3. CITALOPRAM [Concomitant]
  4. PRAZEPAM [Concomitant]
  5. LORMETAZEPAM [Concomitant]

REACTIONS (14)
  - Drug screen positive [None]
  - Coma [None]
  - Hypotonia [None]
  - Areflexia [None]
  - Myoclonus [None]
  - Haemodynamic instability [None]
  - Hypotension [None]
  - Bradycardia [None]
  - Electrocardiogram QT prolonged [None]
  - Pneumonia aspiration [None]
  - Exposure via ingestion [None]
  - Abnormal behaviour [None]
  - Persecutory delusion [None]
  - Poisoning [None]
